FAERS Safety Report 23485316 (Version 2)
Quarter: 2025Q1

REPORT INFORMATION
  Report Type: Spontaneous
  Country: US (occurrence: US)
  Receive Date: 20240206
  Receipt Date: 20250312
  Transmission Date: 20250408
  Serious: No
  Sender: SANOFI AVENTIS
  Company Number: US-SA-SAC20240125001077

PATIENT
  Sex: Female
  Weight: 76.2 kg

DRUGS (1)
  1. LUMIZYME [Suspect]
     Active Substance: ALGLUCOSIDASE ALFA
     Indication: Glycogen storage disease type II
     Dosage: 1700 MG, QOW
     Route: 042
     Dates: start: 202207

REACTIONS (1)
  - Weight decreased [Not Recovered/Not Resolved]
